FAERS Safety Report 24406724 (Version 2)
Quarter: 2024Q4

REPORT INFORMATION
  Report Type: Report from Study
  Country: US (occurrence: US)
  Receive Date: 20241007
  Receipt Date: 20241016
  Transmission Date: 20250114
  Serious: Yes (Hospitalization, Other)
  Sender: OTSUKA
  Company Number: US-OTSUKA-2024_027063

PATIENT
  Age: 39 Year
  Sex: Female
  Weight: 59 kg

DRUGS (8)
  1. TOLVAPTAN [Suspect]
     Active Substance: TOLVAPTAN
     Indication: Congenital cystic kidney disease
     Dosage: 30 MG, QD (UPON WAKING)
     Route: 065
     Dates: end: 20240926
  2. TOLVAPTAN [Suspect]
     Active Substance: TOLVAPTAN
     Dosage: 15 MG, QD (8 HRS LATER)
     Route: 065
     Dates: end: 20240926
  3. TOLVAPTAN [Suspect]
     Active Substance: TOLVAPTAN
     Dosage: 45 MG
     Route: 065
     Dates: start: 202407
  4. TOLVAPTAN [Suspect]
     Active Substance: TOLVAPTAN
     Dosage: 15 MG
     Route: 065
     Dates: start: 202407
  5. TOLVAPTAN [Suspect]
     Active Substance: TOLVAPTAN
     Dosage: UNK
     Route: 065
     Dates: start: 20240811
  6. LOSARTAN [Suspect]
     Active Substance: LOSARTAN
     Indication: Hypertension
     Dosage: UNK
     Route: 065
     Dates: end: 20240926
  7. LOSARTAN [Suspect]
     Active Substance: LOSARTAN
     Indication: Proteinuria
     Dosage: 25 MG
     Route: 065
     Dates: start: 20240926
  8. LOKELMA [Suspect]
     Active Substance: SODIUM ZIRCONIUM CYCLOSILICATE
     Indication: Hyperkalaemia
     Dosage: UNK
     Route: 065
     Dates: end: 20240926

REACTIONS (5)
  - Vaginal discharge [Unknown]
  - Hyperkalaemia [Recovered/Resolved]
  - Abdominal hernia [Unknown]
  - Urinary tract infection [Recovered/Resolved]
  - Transaminases increased [Recovering/Resolving]

NARRATIVE: CASE EVENT DATE: 20240815
